FAERS Safety Report 8996321 (Version 4)
Quarter: 2013Q2

REPORT INFORMATION
  Report Type: Report from Study
  Country: PL (occurrence: PL)
  Receive Date: 20130104
  Receipt Date: 20130527
  Transmission Date: 20140414
  Serious: No
  Sender: FDA-Public Use
  Company Number: PL-ROCHE-1176189

PATIENT
  Age: 65 Year
  Sex: Female
  Weight: 90.9 kg

DRUGS (3)
  1. VEMURAFENIB [Suspect]
     Indication: MALIGNANT MELANOMA
     Dosage: DATE OF LAST DOSE PRIOR TO SAE: 23/JAN/2012
     Route: 048
     Dates: start: 20111102
  2. VEMURAFENIB [Suspect]
     Dosage: DATE OF LAST DOSE PRIOR TO SAE: 29/OCT/2012
     Route: 048
     Dates: start: 20120131
  3. CONCOR COR [Concomitant]
     Route: 065
     Dates: start: 20120201

REACTIONS (1)
  - Haemangioma [Recovered/Resolved]
